FAERS Safety Report 6103683-3 (Version None)
Quarter: 2009Q1

REPORT INFORMATION
  Report Type: 
  Country: None (occurrence: None)
  Receive Date: 20090305
  Receipt Date: 20090224
  Transmission Date: 20090719
  Serious: Yes (Hospitalization)
  Sender: FDA-Public Use
  Company Number: FR-AVENTIS-200811110EU

PATIENT
  Age: 42 Year
  Sex: Female
  Weight: 61 kg

DRUGS (7)
  1. FLUDEX                             /00340101/ [Suspect]
     Indication: DRUG USE FOR UNKNOWN INDICATION
     Route: 048
     Dates: start: 20071022, end: 20071001
  2. ECAZIDE [Suspect]
     Indication: HYPERTENSION
     Dosage: DOSE: 1 DF
     Route: 048
     Dates: start: 20071025
  3. CALCIDOSE                          /00108001/ [Suspect]
     Route: 048
  4. VITAMINA D                         /00107901/ [Suspect]
     Dosage: DOSE: 2 DF
     Route: 048
  5. MOTILYO [Concomitant]
  6. SERC                               /00034201/ [Concomitant]
  7. LEVOTHYROX [Concomitant]

REACTIONS (2)
  - HYPERCALCAEMIA [None]
  - RENAL FAILURE ACUTE [None]
